FAERS Safety Report 24188250 (Version 5)
Quarter: 2025Q1

REPORT INFORMATION
  Report Type: Report from Study
  Country: US (occurrence: US)
  Receive Date: 20240808
  Receipt Date: 20250108
  Transmission Date: 20250408
  Serious: No
  Sender: SANOFI AVENTIS
  Company Number: US-SA-SAC20240805000916

PATIENT
  Age: 45 Year
  Sex: Female

DRUGS (2)
  1. DUPIXENT [Suspect]
     Active Substance: DUPILUMAB
     Indication: Dermatitis atopic
     Dosage: 300 MG, QOW
     Route: 058
     Dates: start: 20220610
  2. DUPIXENT [Suspect]
     Active Substance: DUPILUMAB
     Indication: Eczema

REACTIONS (10)
  - Rash macular [Recovering/Resolving]
  - Paraesthesia [Recovered/Resolved]
  - Tooth infection [Unknown]
  - Contusion [Recovered/Resolved]
  - Skin discolouration [Recovered/Resolved]
  - Skin swelling [Recovered/Resolved]
  - Eczema [Unknown]
  - Inappropriate schedule of product administration [Unknown]
  - Dermatitis atopic [Unknown]
  - Skin haemorrhage [Unknown]

NARRATIVE: CASE EVENT DATE: 20240101
